FAERS Safety Report 21970479 (Version 1)
Quarter: 2023Q1

REPORT INFORMATION
  Report Type: Report from Study
  Country: CA (occurrence: CA)
  Receive Date: 20230209
  Receipt Date: 20230209
  Transmission Date: 20230417
  Serious: Yes (Other)
  Sender: FDA-Public Use
  Company Number: CA-JNJFOC-20230209556

PATIENT
  Sex: Female
  Weight: 61 kg

DRUGS (2)
  1. REMICADE [Suspect]
     Active Substance: INFLIXIMAB
     Indication: Juvenile idiopathic arthritis
     Route: 042
     Dates: start: 20201123
  2. REMICADE [Suspect]
     Active Substance: INFLIXIMAB
     Dosage: 9.79 MG/KG
     Route: 042

REACTIONS (3)
  - Juvenile idiopathic arthritis [Unknown]
  - Incorrect drug administration rate [Unknown]
  - Off label use [Unknown]
